FAERS Safety Report 8977004 (Version 1)
Quarter: 2012Q4

REPORT INFORMATION
  Report Type: 
  Country: US (occurrence: US)
  Receive Date: 20121220
  Receipt Date: 20121220
  Transmission Date: 20130627
  Serious: No
  Sender: FDA-Public Use
  Company Number: US-GLAXOSMITHKLINE-A0986975A

PATIENT
  Age: 65 Year
  Sex: Female

DRUGS (6)
  1. SORIATANE [Suspect]
     Indication: PSORIASIS
     Dosage: 25MG Per day
     Route: 048
     Dates: start: 201201
  2. OINTMENT [Concomitant]
  3. CLOBETASOL [Concomitant]
  4. BETAMETHASONE [Concomitant]
  5. METOPROLOL [Concomitant]
  6. THYROID MEDICATION [Concomitant]

REACTIONS (8)
  - Dry eye [Unknown]
  - Lip dry [Unknown]
  - Eyelash discolouration [Unknown]
  - Madarosis [Unknown]
  - Skin fissures [Unknown]
  - Rhinorrhoea [Unknown]
  - Chapped lips [Not Recovered/Not Resolved]
  - Bone pain [Not Recovered/Not Resolved]
